FAERS Safety Report 6163035-7 (Version None)
Quarter: 2009Q2

REPORT INFORMATION
  Report Type: 
  Country: None (occurrence: None)
  Receive Date: 20090421
  Receipt Date: 20090415
  Transmission Date: 20091009
  Serious: Yes (Other)
  Sender: FDA-Public Use
  Company Number: IT-JNJCH-2009010357

PATIENT
  Sex: Female

DRUGS (1)
  1. ACTIFED [Suspect]
     Indication: NASAL CONGESTION
     Dosage: TEXT:UNSPECIFIED
     Route: 045
     Dates: start: 20090325, end: 20090327

REACTIONS (3)
  - ADENOIDAL HYPERTROPHY [None]
  - ADENOIDITIS [None]
  - DYSPNOEA [None]
